FAERS Safety Report 23196329 (Version 2)
Quarter: 2023Q4

REPORT INFORMATION
  Report Type: Spontaneous
  Country: SK (occurrence: SK)
  Receive Date: 20231117
  Receipt Date: 20231201
  Transmission Date: 20240109
  Serious: Yes (Other)
  Sender: FDA-Public Use
  Company Number: SK-002147023-NVSC2023SK230602

PATIENT
  Sex: Male

DRUGS (11)
  1. COSENTYX [Suspect]
     Active Substance: SECUKINUMAB
     Indication: Hidradenitis
     Dosage: 300 MG (COSENTYX, 2 SUBCUTANEOUS INJECTIONS OF 150MG)
     Route: 058
     Dates: start: 20230707, end: 20231016
  2. COSENTYX [Suspect]
     Active Substance: SECUKINUMAB
     Dosage: 300 MG, Q2W (2 SUBCUTANEOUS INJECTIONS OF 150 MG INJ EVERY TWO WEEKS)
     Route: 058
     Dates: start: 20231005, end: 20231016
  3. NOLIPREL BI FORTE A [Concomitant]
     Indication: Product used for unknown indication
     Dosage: UNK
     Route: 065
  4. DIOSMIN\HESPERIDIN [Concomitant]
     Active Substance: DIOSMIN\HESPERIDIN
     Indication: Product used for unknown indication
     Dosage: UNK
     Route: 065
  5. OCTENISAN WASH LOTION [Concomitant]
     Indication: Hidradenitis
     Dosage: UNK
     Route: 065
  6. MICRODACYN [Concomitant]
     Indication: Hidradenitis
     Dosage: UNK
     Route: 065
  7. ICHTHAMMOL [Concomitant]
     Active Substance: ICHTHAMMOL
     Indication: Hidradenitis
     Dosage: UNK
     Route: 065
  8. CHLORAMPHENICOL [Concomitant]
     Active Substance: CHLORAMPHENICOL
     Indication: Hidradenitis
     Dosage: UNK
     Route: 065
  9. BANEOCIN [Concomitant]
     Indication: Hidradenitis
     Dosage: UNK
     Route: 065
  10. BETAMETHASONE DIPROPIONATE\GENTAMICIN SULFATE [Concomitant]
     Active Substance: BETAMETHASONE DIPROPIONATE\GENTAMICIN SULFATE
     Indication: Hidradenitis
     Dosage: UNK
     Route: 065
  11. FUCIDIN [Concomitant]
     Active Substance: FUSIDATE SODIUM
     Indication: Hidradenitis
     Dosage: UNK
     Route: 065

REACTIONS (5)
  - Pyoderma [Recovered/Resolved]
  - Acne [Recovering/Resolving]
  - Skin lesion [Recovering/Resolving]
  - Papule [Recovering/Resolving]
  - Therapeutic product effect incomplete [Recovering/Resolving]

NARRATIVE: CASE EVENT DATE: 20230718
